FAERS Safety Report 5259354-9 (Version None)
Quarter: 2007Q1

REPORT INFORMATION
  Report Type: 
  Country: None (occurrence: None)
  Receive Date: 20070305
  Receipt Date: 20070227
  Transmission Date: 20070707
  Serious: Yes (Other)
  Sender: FDA-Public Use
  Company Number: SP01146

PATIENT
  Sex: Male

DRUGS (1)
  1. MOVIPREP [Suspect]
     Indication: COLONOSCOPY
     Dosage: UNK (2 LIT), ORAL
     Route: 048

REACTIONS (5)
  - BLOOD PRESSURE DECREASED [None]
  - DEHYDRATION [None]
  - DRY MOUTH [None]
  - DRY SKIN [None]
  - TREATMENT NONCOMPLIANCE [None]
